FAERS Safety Report 9444254 (Version 1)
Quarter: 2013Q3

REPORT INFORMATION
  Report Type: Spontaneous
  Country: GB (occurrence: GB)
  Receive Date: 20130807
  Receipt Date: 20130807
  Transmission Date: 20140515
  Serious: Yes (Other)
  Sender: FDA-Public Use
  Company Number: PHHY2013GB084376

PATIENT
  Sex: Female

DRUGS (2)
  1. STALEVO [Suspect]
     Indication: PARKINSON^S DISEASE
     Dosage: 200/200/50 MG, DAILY
     Route: 048
  2. STALEVO [Suspect]
     Indication: OFF LABEL USE

REACTIONS (1)
  - Cerebrovascular accident [Unknown]
